FAERS Safety Report 19191153 (Version 1)
Quarter: 2021Q2

REPORT INFORMATION
  Report Type: Report from Study
  Country: CA (occurrence: CA)
  Receive Date: 20210428
  Receipt Date: 20210428
  Transmission Date: 20210717
  Serious: Yes (Hospitalization)
  Sender: FDA-Public Use
  Company Number: CA-PFIZER INC-2021449544

PATIENT
  Age: 65 Year
  Sex: Female

DRUGS (7)
  1. ACLASTA [Concomitant]
     Active Substance: ZOLEDRONIC ACID
     Indication: OSTEOPOROSIS
  2. RITUXIMAB. [Suspect]
     Active Substance: RITUXIMAB
     Indication: RHEUMATOID ARTHRITIS
     Route: 042
  3. CALCIUM [Concomitant]
     Active Substance: CALCIUM
  4. ZOPICLONE [Concomitant]
     Active Substance: ZOPICLONE
  5. METHOTREXATE SODIUM. [Suspect]
     Active Substance: METHOTREXATE SODIUM
  6. VENLAFAXINE [Concomitant]
     Active Substance: VENLAFAXINE HYDROCHLORIDE
  7. AMITRIPTYLINE [Concomitant]
     Active Substance: AMITRIPTYLINE

REACTIONS (4)
  - Vertigo [Unknown]
  - Dizziness [Unknown]
  - Headache [Unknown]
  - Pulmonary toxicity [Unknown]
